FAERS Safety Report 21514086 (Version 5)
Quarter: 2022Q4

REPORT INFORMATION
  Report Type: Report from Study
  Country: US (occurrence: US)
  Receive Date: 20221027
  Receipt Date: 20221219
  Transmission Date: 20230113
  Serious: Yes (Death, Other)
  Sender: FDA-Public Use
  Company Number: US-009507513-2210USA008835

PATIENT
  Age: 52 Year
  Sex: Male

DRUGS (4)
  1. KEYTRUDA [Suspect]
     Active Substance: PEMBROLIZUMAB
     Indication: Glioblastoma
     Dosage: 200MG EVERY 21 DAYS
     Route: 042
     Dates: start: 20211129, end: 20220314
  2. TEMODAR [Suspect]
     Active Substance: TEMOZOLOMIDE
     Indication: Adjuvant therapy
     Dosage: UNK
  3. GLEOSTINE [Suspect]
     Active Substance: LOMUSTINE
  4. BEVACIZUMAB [Suspect]
     Active Substance: BEVACIZUMAB

REACTIONS (2)
  - Malignant neoplasm progression [Fatal]
  - Product use in unapproved indication [Unknown]

NARRATIVE: CASE EVENT DATE: 20211129
